FAERS Safety Report 11608113 (Version 1)
Quarter: 2015Q4

REPORT INFORMATION
  Report Type: Spontaneous
  Country: CO (occurrence: CO)
  Receive Date: 20151007
  Receipt Date: 20151007
  Transmission Date: 20160304
  Serious: Yes (Hospitalization)
  Sender: FDA-Public Use
  Company Number: CO-JNJFOC-20151002181

PATIENT
  Age: 51 Year
  Sex: Male
  Weight: 82 kg

DRUGS (3)
  1. QUETIAPINE [Concomitant]
     Active Substance: QUETIAPINE
     Route: 065
  2. RISPERDAL CONSTA [Suspect]
     Active Substance: RISPERIDONE
     Indication: BIPOLAR DISORDER
     Route: 030
     Dates: start: 20120606
  3. LITHIUM. [Concomitant]
     Active Substance: LITHIUM
     Route: 065

REACTIONS (3)
  - Off label use [Unknown]
  - Product use issue [Unknown]
  - Nervousness [Recovered/Resolved]

NARRATIVE: CASE EVENT DATE: 20120606
